FAERS Safety Report 7591949-X (Version None)
Quarter: 2011Q3

REPORT INFORMATION
  Report Type: 
  Country: None (occurrence: None)
  Receive Date: 20110706
  Receipt Date: 20110630
  Transmission Date: 20111222
  Serious: Yes (Life-Threatening)
  Sender: FDA-Public Use
  Company Number: JP-EISAI INC-E2020-06844-CLI-JP

PATIENT
  Sex: Female
  Weight: 44.1 kg

DRUGS (15)
  1. ARICEPT [Suspect]
     Route: 048
     Dates: start: 20090501, end: 20090528
  2. LOVOX [Concomitant]
     Route: 048
     Dates: start: 20020923
  3. LIPIDIL [Concomitant]
     Route: 048
     Dates: start: 20090619
  4. ENSURE [Concomitant]
     Route: 048
  5. SEROQUEL [Concomitant]
     Route: 048
     Dates: start: 20051101
  6. RABEPRAZOLE SODIUM [Concomitant]
     Route: 048
     Dates: start: 20081225
  7. ALPRAZOLAM [Concomitant]
     Route: 048
     Dates: start: 20060502
  8. ARICEPT [Suspect]
     Indication: DEMENTIA ALZHEIMER'S TYPE
     Route: 048
     Dates: start: 20090327, end: 20090501
  9. PURSENNID [Concomitant]
     Route: 048
     Dates: start: 20060413
  10. ARICEPT [Suspect]
     Route: 048
     Dates: start: 20090528, end: 20100104
  11. ARICEPT [Suspect]
     Route: 048
     Dates: start: 20100123
  12. DEPAS [Concomitant]
     Route: 048
     Dates: start: 20050512
  13. METHYCOBAL [Concomitant]
     Route: 048
     Dates: start: 20030821
  14. MAGNESIUM SULFATE [Concomitant]
     Route: 048
     Dates: start: 20060413
  15. JUVELA N [Concomitant]
     Route: 048
     Dates: start: 20030821

REACTIONS (2)
  - SMALL INTESTINAL PERFORATION [None]
  - OVERDOSE [None]
